FAERS Safety Report 14457830 (Version 1)
Quarter: 2018Q1

REPORT INFORMATION
  Report Type: Spontaneous
  Country: JP (occurrence: JP)
  Receive Date: 20180130
  Receipt Date: 20180130
  Transmission Date: 20180509
  Serious: Yes (Death, Other)
  Sender: FDA-Public Use
  Company Number: JP-JNJFOC-20180112103

PATIENT
  Age: 69 Year
  Sex: Male

DRUGS (2)
  1. FENTOS [Suspect]
     Active Substance: FENTANYL
     Indication: PRODUCT USED FOR UNKNOWN INDICATION
     Route: 062
  2. TRAMCET [Suspect]
     Active Substance: ACETAMINOPHEN\TRAMADOL
     Indication: PAIN
     Route: 048

REACTIONS (2)
  - Delirium [Unknown]
  - Death [Fatal]

NARRATIVE: CASE EVENT DATE: 20180126
